FAERS Safety Report 8600712-X (Version None)
Quarter: 2012Q3

REPORT INFORMATION
  Report Type: 
  Country: None (occurrence: None)
  Receive Date: 20120803
  Receipt Date: 20120727
  Transmission Date: 20120928
  Serious: Yes (Other)
  Sender: FDA-Public Use
  Company Number: 2012-01161

PATIENT
  Age: 69 Year
  Sex: Male
  Weight: 85 kg

DRUGS (11)
  1. DEXAMETHASONE [Concomitant]
  2. ENTOCORT EC [Concomitant]
  3. CALCIUM (CALCIUM CARBONATE) (UNKNOWN) [Concomitant]
  4. FINASTERIDE [Concomitant]
  5. CARBOMER + CARBOMER 980 (VISCOTEARS) (UNKNOWN) [Concomitant]
  6. LANSOPRAZOLE [Concomitant]
  7. SIMVASTATIN [Suspect]
     Indication: PRODUCT USED FOR UNKNOWN INDICATION
     Dates: start: 20120622
  8. FLUTICASONE (FLUTICASONE PROPIONATE) (UNKNOWN) [Concomitant]
  9. TERAZOSIN (UNKNOWN) [Concomitant]
  10. SALBUTAMOL + SALBUTAMOL BASE + SALBUTAMOL SULPHATE + SALBUTAMOL SULPHA [Concomitant]
  11. AMOXICILLIN [Concomitant]

REACTIONS (2)
  - DYSPNOEA [None]
  - CHEST DISCOMFORT [None]
